FAERS Safety Report 5220663-0 (Version None)
Quarter: 2007Q1

REPORT INFORMATION
  Report Type: 
  Country: None (occurrence: None)
  Receive Date: 20070126
  Receipt Date: 20070119
  Transmission Date: 20070707
  Serious: Yes (Other)
  Sender: FDA-Public Use
  Company Number: 2007UW00825

PATIENT
  Age: 67 Year
  Sex: Female

DRUGS (1)
  1. CRESTOR [Suspect]
     Route: 048
     Dates: start: 20030101, end: 20061201

REACTIONS (4)
  - BONE DISORDER [None]
  - BONE PAIN [None]
  - DIABETES MELLITUS [None]
  - MYALGIA [None]
